FAERS Safety Report 7084651-4 (Version None)
Quarter: 2010Q4

REPORT INFORMATION
  Report Type: 
  Country: None (occurrence: None)
  Receive Date: 20101104
  Receipt Date: 20101028
  Transmission Date: 20110411
  Serious: Yes (Hospitalization)
  Sender: FDA-Public Use
  Company Number: PHHY2010JP73049

PATIENT
  Age: 7 Year
  Sex: Male

DRUGS (1)
  1. ZADITEN [Suspect]
     Dosage: UNK

REACTIONS (1)
  - CONVULSION [None]
